FAERS Safety Report 25792359 (Version 1)
Quarter: 2025Q3

REPORT INFORMATION
  Report Type: Spontaneous
  Country: US (occurrence: US)
  Receive Date: 20250911
  Receipt Date: 20250911
  Transmission Date: 20251021
  Serious: No
  Sender: VERTEX
  Company Number: US-VERTEX PHARMACEUTICALS-2025-014618

PATIENT
  Sex: Female

DRUGS (1)
  1. TRIKAFTA [Suspect]
     Active Substance: ELEXACAFTOR\IVACAFTOR\TEZACAFTOR
     Indication: Cystic fibrosis
     Route: 048

REACTIONS (8)
  - Hidradenitis [Recovering/Resolving]
  - Lipohypertrophy [Recovering/Resolving]
  - Neck mass [Recovering/Resolving]
  - Breast mass [Not Recovered/Not Resolved]
  - Cortisol increased [Recovering/Resolving]
  - Hormone level abnormal [Unknown]
  - Axillary pain [Not Recovered/Not Resolved]
  - Breast pain [Unknown]
